FAERS Safety Report 10012953 (Version 1)
Quarter: 2014Q1

REPORT INFORMATION
  Report Type: Spontaneous
  Country: DK (occurrence: IT)
  Receive Date: 20140314
  Receipt Date: 20140314
  Transmission Date: 20141002
  Serious: Yes (Other)
  Sender: FDA-Public Use
  Company Number: IT-FRI-1000064618

PATIENT
  Age: 45 Year
  Sex: Male

DRUGS (4)
  1. ESCITALOPRAM [Suspect]
     Dosage: 3 TABLETS OF CIPRALEX 5 MG
     Route: 048
     Dates: start: 20140219, end: 20140219
  2. RISPERDAL [Suspect]
     Dosage: 4 TABLETS OF RISPERDAL 2MG
     Route: 048
     Dates: start: 20140219, end: 20140219
  3. TAVOR [Suspect]
     Dosage: 4 TABLETS OF TAVOR
     Dates: start: 20140219, end: 20140219
  4. VALIUM [Suspect]
     Dosage: 25 DROPS OF VALIUM 0.5%
     Dates: start: 20140219, end: 20140219

REACTIONS (3)
  - Intentional overdose [Unknown]
  - Self injurious behaviour [Unknown]
  - Somnolence [Unknown]
